FAERS Safety Report 10091782 (Version 2)
Quarter: 2014Q2

REPORT INFORMATION
  Report Type: Spontaneous
  Country: US (occurrence: US)
  Receive Date: 20140421
  Receipt Date: 20140421
  Transmission Date: 20141212
  Serious: Yes (Other)
  Sender: FDA-Public Use
  Company Number: US-PURDUE-USA-2004-0012731

PATIENT
  Age: 34 Year
  Sex: Female

DRUGS (3)
  1. OXYFAST CONCENTRATE 20 MG/ML [Suspect]
     Indication: PAIN
     Dosage: UNK MG, Q4H PRN
     Route: 065
  2. HUMALOG [Concomitant]
     Indication: PRODUCT USED FOR UNKNOWN INDICATION
     Dosage: UNK UNK, UNK
     Route: 065
  3. DURAGESIC                          /00174601/ [Concomitant]
     Indication: PRODUCT USED FOR UNKNOWN INDICATION
     Dosage: UNK UNK, UNK
     Route: 062

REACTIONS (2)
  - Drug abuse [Unknown]
  - Blood glucose increased [Unknown]
